FAERS Safety Report 10591114 (Version 2)
Quarter: 2015Q1

REPORT INFORMATION
  Report Type: Spontaneous
  Country: US (occurrence: US)
  Receive Date: 20141118
  Receipt Date: 20150323
  Transmission Date: 20150720
  Serious: Yes (Hospitalization)
  Sender: FDA-Public Use
  Company Number: US-ABBVIE-14P-163-1308227-00

PATIENT
  Sex: Male

DRUGS (1)
  1. ANDROGEL [Suspect]
     Active Substance: TESTOSTERONE
     Indication: BLOOD TESTOSTERONE DECREASED
     Route: 065
     Dates: start: 201202, end: 201210

REACTIONS (9)
  - Muscle spasms [Unknown]
  - Pulmonary infarction [Unknown]
  - Fear [Unknown]
  - Pulmonary embolism [Unknown]
  - Social problem [Unknown]
  - Economic problem [Unknown]
  - Anhedonia [Unknown]
  - Impaired work ability [Unknown]
  - Emotional distress [Unknown]

NARRATIVE: CASE EVENT DATE: 20121113
